FAERS Safety Report 7522164-3 (Version None)
Quarter: 2011Q2

REPORT INFORMATION
  Report Type: 
  Country: None (occurrence: None)
  Receive Date: 20110603
  Receipt Date: 20110601
  Transmission Date: 20111010
  Serious: Yes (Hospitalization)
  Sender: FDA-Public Use
  Company Number: DE-ABBOTT-11P-062-0718628-00

PATIENT
  Sex: Female

DRUGS (4)
  1. INSIDON [Concomitant]
     Indication: PRODUCT USED FOR UNKNOWN INDICATION
  2. HUMIRA [Suspect]
     Indication: PSORIASIS
     Route: 058
     Dates: start: 20110310, end: 20110317
  3. HUMIRA [Suspect]
     Route: 058
     Dates: start: 20110407
  4. BERODUAL [Concomitant]
     Indication: PRODUCT USED FOR UNKNOWN INDICATION

REACTIONS (6)
  - FUNGAL INFECTION [None]
  - DYSPNOEA [None]
  - OESOPHAGEAL CANDIDIASIS [None]
  - OESOPHAGITIS [None]
  - GASTRITIS [None]
  - ABDOMINAL PAIN UPPER [None]
